FAERS Safety Report 6276704-5 (Version None)
Quarter: 2009Q3

REPORT INFORMATION
  Report Type: 
  Country: None (occurrence: None)
  Receive Date: 20090722
  Receipt Date: 20080812
  Transmission Date: 20100115
  Serious: No
  Sender: FDA-Public Use
  Company Number: US-BRISTOL-MYERS SQUIBB COMPANY-14270151

PATIENT
  Age: 34 Year
  Sex: Female
  Weight: 86 kg

DRUGS (2)
  1. COUMADIN [Suspect]
     Indication: PULMONARY EMBOLISM
     Dosage: 1 DOSAGE FORM = 10-14 MG
     Route: 048
     Dates: start: 20061030
  2. CELEXA [Concomitant]

REACTIONS (6)
  - ASTHENIA [None]
  - COUGH [None]
  - DIZZINESS [None]
  - DYSPNOEA [None]
  - FATIGUE [None]
  - INTERNATIONAL NORMALISED RATIO FLUCTUATION [None]
